FAERS Safety Report 15726083 (Version 1)
Quarter: 2018Q4

REPORT INFORMATION
  Report Type: Spontaneous
  Country: US (occurrence: US)
  Receive Date: 20181216
  Receipt Date: 20181216
  Transmission Date: 20190205
  Serious: No
  Sender: FDA-Public Use
  Company Number: US-SUPERNUS PHARMACEUTICALS, INC.-2018SUP00262

PATIENT
  Age: 69 Year
  Sex: Male
  Weight: 87.76 kg

DRUGS (18)
  1. VITAMIN D [Concomitant]
     Active Substance: CHOLECALCIFEROL
     Route: 048
  2. TROKENDI XR [Suspect]
     Active Substance: TOPIRAMATE
     Dosage: 75 MG, 1X/DAY
     Route: 048
     Dates: start: 201808, end: 201809
  3. HYDROXYZINE [Concomitant]
     Active Substance: HYDROXYZINE HYDROCHLORIDE
     Route: 048
  4. LANTUS [Concomitant]
     Active Substance: INSULIN GLARGINE
     Route: 058
  5. GABAPENTIN. [Concomitant]
     Active Substance: GABAPENTIN
     Route: 048
  6. TROKENDI XR [Suspect]
     Active Substance: TOPIRAMATE
     Indication: MIGRAINE
     Dosage: 100 MG, 1X/DAY
     Route: 048
     Dates: start: 201809, end: 20180912
  7. LEVOTHYROXINE. [Concomitant]
     Active Substance: LEVOTHYROXINE
     Route: 048
  8. PANTOPRAZOLE [Concomitant]
     Active Substance: PANTOPRAZOLE
     Route: 048
  9. METOPROLOL. [Concomitant]
     Active Substance: METOPROLOL
     Route: 048
  10. ALBUTEROL. [Concomitant]
     Active Substance: ALBUTEROL
  11. LOSARTAN. [Concomitant]
     Active Substance: LOSARTAN
     Route: 048
  12. HYDRALAZINE [Concomitant]
     Active Substance: HYDRALAZINE HYDROCHLORIDE
     Route: 048
  13. TAMSULOSIN [Concomitant]
     Active Substance: TAMSULOSIN
     Route: 048
  14. MESALAMINE. [Concomitant]
     Active Substance: MESALAMINE
     Route: 048
  15. OXYCONTIN [Concomitant]
     Active Substance: OXYCODONE HYDROCHLORIDE
     Route: 048
  16. MORPHINE SULFATE. [Concomitant]
     Active Substance: MORPHINE SULFATE
     Route: 048
  17. TROKENDI XR [Suspect]
     Active Substance: TOPIRAMATE
     Indication: MIGRAINE
     Dosage: 25 MG, 1X/DAY
     Route: 048
     Dates: start: 201808, end: 201808
  18. TROKENDI XR [Suspect]
     Active Substance: TOPIRAMATE
     Dosage: 50 MG, 1X/DAY
     Route: 048
     Dates: start: 201808, end: 201808

REACTIONS (2)
  - Headache [Not Recovered/Not Resolved]
  - Drug ineffective [Recovered/Resolved]

NARRATIVE: CASE EVENT DATE: 201808
